FAERS Safety Report 9940837 (Version 1)
Quarter: 2014Q1

REPORT INFORMATION
  Report Type: Spontaneous
  Country: US (occurrence: US)
  Receive Date: 20140303
  Receipt Date: 20140303
  Transmission Date: 20141002
  Serious: Yes (Other)
  Sender: FDA-Public Use
  Company Number: US-PFIZER INC-2014058200

PATIENT
  Age: 50 Year
  Sex: Male

DRUGS (4)
  1. GENOTROPIN [Suspect]
     Indication: GROWTH HORMONE DEFICIENCY
     Dosage: 0.4 MG, 1X/DAY
     Dates: start: 2011
  2. GENOTROPIN [Suspect]
     Dosage: 0.2 MG, 1X/DAY
     Dates: end: 2011
  3. HYDROCORTISONE [Concomitant]
     Dosage: UNK, AS NEEDED
  4. FLUDROCORTISONE [Concomitant]
     Dosage: UNK, AS NEEDED

REACTIONS (5)
  - Pancreatitis [Unknown]
  - Vision blurred [Unknown]
  - Bone pain [Unknown]
  - Personality change [Unknown]
  - Fatigue [Unknown]
